FAERS Safety Report 8422940-9 (Version None)
Quarter: 2012Q2

REPORT INFORMATION
  Report Type: 
  Country: None (occurrence: None)
  Receive Date: 20120608
  Receipt Date: 20120511
  Transmission Date: 20120825
  Serious: Yes (Hospitalization)
  Sender: FDA-Public Use
  Company Number: JP-GLAXOSMITHKLINE-B0801477A

PATIENT
  Sex: Female

DRUGS (2)
  1. HEPARIN CALCIUM [Suspect]
     Indication: THROMBOSIS PROPHYLAXIS
     Dosage: 10IU3 PER DAY
     Route: 058
     Dates: start: 20120326, end: 20120327
  2. ARIXTRA [Suspect]
     Indication: THROMBOSIS PROPHYLAXIS
     Dosage: 2.5MG PER DAY
     Route: 058
     Dates: start: 20120328, end: 20120329

REACTIONS (11)
  - ANAEMIA [None]
  - HAEMATOMA [None]
  - ABDOMINAL PAIN [None]
  - RED BLOOD CELL COUNT DECREASED [None]
  - HAEMATOCRIT DECREASED [None]
  - PLATELET COUNT DECREASED [None]
  - PYREXIA [None]
  - HAEMOGLOBIN DECREASED [None]
  - BLOOD URINE PRESENT [None]
  - INDURATION [None]
  - C-REACTIVE PROTEIN INCREASED [None]
